FAERS Safety Report 20991769 (Version 3)
Quarter: 2023Q2

REPORT INFORMATION
  Report Type: Spontaneous
  Country: US (occurrence: US)
  Receive Date: 20220622
  Receipt Date: 20230630
  Transmission Date: 20230721
  Serious: No
  Sender: FDA-Public Use
  Company Number: US-UNITED THERAPEUTICS-UNT-2022-013099

PATIENT
  Sex: Female

DRUGS (10)
  1. REMODULIN [Suspect]
     Active Substance: TREPROSTINIL
     Indication: Pulmonary arterial hypertension
     Dosage: 0.0338 ?G/KG, CONTINUING
     Route: 058
  2. REMODULIN [Suspect]
     Active Substance: TREPROSTINIL
     Dosage: 0.0368 ?G/KG, CONTINUING (AT INFUSION RATE 0.024 ML/HR)
     Route: 058
     Dates: start: 20220713
  3. REMODULIN [Suspect]
     Active Substance: TREPROSTINIL
     Dosage: 0.0338 ?G/KG, CONTINUING
     Route: 058
     Dates: start: 20220719
  4. REMODULIN [Suspect]
     Active Substance: TREPROSTINIL
     Dosage: 0.05666 ?G/KG, CONTINUING
     Route: 058
  5. REMODULIN [Suspect]
     Active Substance: TREPROSTINIL
     Dosage: UNK, CONTINUING
     Route: 058
     Dates: start: 20211116
  6. ADCIRCA [Suspect]
     Active Substance: TADALAFIL
     Indication: Pulmonary arterial hypertension
     Dosage: 40 MG, QD
     Route: 048
     Dates: start: 20210105
  7. ADCIRCA [Suspect]
     Active Substance: TADALAFIL
     Dosage: 20 MG, QD
     Route: 065
     Dates: start: 202103
  8. BARDOXOLONE [Concomitant]
     Active Substance: BARDOXOLONE
     Indication: Product used for unknown indication
     Dosage: UNK
     Route: 065
     Dates: end: 202206
  9. BARDOXOLONE [Concomitant]
     Active Substance: BARDOXOLONE
     Dosage: UNK
     Route: 065
     Dates: start: 2022
  10. AMBRISENTAN [Concomitant]
     Active Substance: AMBRISENTAN
     Indication: Pulmonary arterial hypertension
     Dosage: 10 MG, QD
     Route: 065

REACTIONS (12)
  - Fall [Recovered/Resolved with Sequelae]
  - Head injury [Unknown]
  - Contusion [Unknown]
  - Infusion site discharge [Recovered/Resolved]
  - Infusion site rash [Unknown]
  - Concussion [Unknown]
  - Feeling abnormal [Unknown]
  - Cough [Recovered/Resolved]
  - Cardiomegaly [Unknown]
  - Weight decreased [Unknown]
  - Diarrhoea [Unknown]
  - Face injury [Unknown]

NARRATIVE: CASE EVENT DATE: 20220101
